FAERS Safety Report 14226184 (Version 1)
Quarter: 2017Q4

REPORT INFORMATION
  Report Type: Spontaneous
  Country: SN (occurrence: SN)
  Receive Date: 20171127
  Receipt Date: 20171127
  Transmission Date: 20180321
  Serious: Yes (Hospitalization)
  Sender: FDA-Public Use
  Company Number: SN-ARBOR PHARMACEUTICALS, LLC-SN-2017ARB001005

PATIENT
  Age: 35 Year
  Sex: Male

DRUGS (2)
  1. IVERMECTIN. [Suspect]
     Active Substance: IVERMECTIN
     Indication: PRODUCT USED FOR UNKNOWN INDICATION
     Dosage: 150 ?G/KG, SINGLE
     Dates: start: 20160509
  2. IVERMECTIN. [Suspect]
     Active Substance: IVERMECTIN
     Dosage: 150 ?G/KG, SINGLE
     Dates: start: 20160524

REACTIONS (3)
  - Extra dose administered [Unknown]
  - Toxic encephalopathy [Recovered/Resolved]
  - Blindness [Not Recovered/Not Resolved]

NARRATIVE: CASE EVENT DATE: 20160524
